FAERS Safety Report 25586890 (Version 1)
Quarter: 2025Q3

REPORT INFORMATION
  Report Type: Spontaneous
  Country: US (occurrence: US)
  Receive Date: 20250721
  Receipt Date: 20250721
  Transmission Date: 20251021
  Serious: No
  Sender: Phathom Pharmaceuticals
  Company Number: US-PHATHOM PHARMACEUTICALS INC.-2025PHT01606

PATIENT
  Age: 78 Year
  Sex: Male

DRUGS (16)
  1. VOQUEZNA [Suspect]
     Active Substance: VONOPRAZAN FUMARATE
     Route: 048
     Dates: start: 20250614, end: 20250616
  2. VITAMINS [Concomitant]
     Active Substance: VITAMINS
  3. METOPROLOL SUCCINATE [Concomitant]
     Active Substance: METOPROLOL SUCCINATE
  4. LOVASTATIN [Concomitant]
     Active Substance: LOVASTATIN
  5. LOSARTAN [Concomitant]
     Active Substance: LOSARTAN
  6. LATANOPROST [Concomitant]
     Active Substance: LATANOPROST
  7. GLUCOSAMINE + CHONDORITIN [Concomitant]
  8. VITAMIN D NOS [Concomitant]
     Active Substance: CHOLECALCIFEROL\ERGOCALCIFEROL
  9. CALCIUM [Concomitant]
     Active Substance: CALCIUM
  10. BIOTIN [Concomitant]
     Active Substance: BIOTIN
  11. DIPHENHYDRAMINE [Concomitant]
     Active Substance: DIPHENHYDRAMINE
  12. GARLIC (DEODORIZED) [Concomitant]
  13. ADVAIR DISKUS [Concomitant]
     Active Substance: FLUTICASONE PROPIONATE\SALMETEROL XINAFOATE
  14. TADALAFIL [Concomitant]
     Active Substance: TADALAFIL
  15. MOMETASONE [Concomitant]
     Active Substance: MOMETASONE
  16. IPRATROPIUM BROMIDE [Concomitant]
     Active Substance: IPRATROPIUM BROMIDE

REACTIONS (1)
  - Tremor [Unknown]

NARRATIVE: CASE EVENT DATE: 20250601
